FAERS Safety Report 23986123 (Version 2)
Quarter: 2024Q2

REPORT INFORMATION
  Report Type: Spontaneous
  Country: US (occurrence: US)
  Receive Date: 20240618
  Receipt Date: 20240620
  Transmission Date: 20240715
  Serious: No
  Sender: FDA-Public Use
  Company Number: ae003US24

PATIENT
  Age: 60 Year
  Sex: Female
  Weight: 57.61 kg

DRUGS (3)
  1. ASCLERA [Suspect]
     Active Substance: POLIDOCANOL
     Indication: Haemangioma of skin
     Dates: start: 20240614, end: 20240614
  2. ANTIHISTAMINES NOS [Concomitant]
     Active Substance: ANTIHISTAMINES NOS
     Route: 048
  3. ICE [Concomitant]
     Active Substance: MENTHOL

REACTIONS (4)
  - Lip swelling [Unknown]
  - Hypoaesthesia oral [Unknown]
  - Off label use [Unknown]
  - Oedema [Not Recovered/Not Resolved]

NARRATIVE: CASE EVENT DATE: 20240614
